FAERS Safety Report 4585456-6 (Version None)
Quarter: 2005Q1

REPORT INFORMATION
  Report Type: 
  Country: None (occurrence: None)
  Receive Date: 20050214
  Receipt Date: 20050203
  Transmission Date: 20050727
  Serious: Yes (Death)
  Sender: FDA-Public Use
  Company Number: US-2004-037327

PATIENT
  Age: 56 Year
  Sex: Female

DRUGS (9)
  1. BETASERON [Suspect]
     Indication: MULTIPLE SCLEROSIS
     Dosage: EVERY 2D, SUBCUTANEOUS
     Route: 058
     Dates: start: 20030310, end: 20040813
  2. CELEBREX [Concomitant]
  3. ZYPREXA [Concomitant]
  4. CELEXA [Concomitant]
  5. OXAZEPAM [Concomitant]
  6. LASIX [Concomitant]
  7. PROCARDIA [Concomitant]
  8. ALLEGRA [Concomitant]
  9. DARVOCET [Concomitant]

REACTIONS (1)
  - DEATH [None]
